FAERS Safety Report 20160991 (Version 2)
Quarter: 2021Q4

REPORT INFORMATION
  Report Type: Spontaneous
  Country: NL (occurrence: NL)
  Receive Date: 20211208
  Receipt Date: 20211220
  Transmission Date: 20220303
  Serious: Yes (Other)
  Sender: FDA-Public Use
  Company Number: NL-TEVA-2021-NL-1984906

PATIENT
  Age: 62 Year
  Sex: Male

DRUGS (2)
  1. PREDNISOLONE [Suspect]
     Active Substance: PREDNISOLONE
     Indication: Toxic skin eruption
     Dosage: 40 MILLIGRAM DAILY; TAPERED DOSE
     Route: 065
  2. NIVOLUMAB [Suspect]
     Active Substance: NIVOLUMAB
     Indication: Non-small cell lung cancer metastatic
     Dosage: SCHEDULED FOR 8MONTHS
     Route: 065

REACTIONS (2)
  - Toxic skin eruption [Unknown]
  - Mucocutaneous leishmaniasis [Recovering/Resolving]
